FAERS Safety Report 6528100-0 (Version None)
Quarter: 2010Q1

REPORT INFORMATION
  Report Type: 
  Country: None (occurrence: None)
  Receive Date: 20100105
  Receipt Date: 20100105
  Transmission Date: 20100710
  Serious: Yes (Other)
  Sender: FDA-Public Use
  Company Number: None

PATIENT
  Age: 41 Year
  Sex: Female
  Weight: 77.3 kg

DRUGS (1)
  1. EFFEXOR [Suspect]
     Indication: DEPRESSION
     Dosage: 25 MG ONCE PER DAY ORAL
     Route: 048
     Dates: start: 20090827, end: 20091010

REACTIONS (6)
  - ERYTHEMA [None]
  - PAIN [None]
  - PRURITUS [None]
  - RASH [None]
  - SKIN LESION [None]
  - URTICARIA [None]
